FAERS Safety Report 8514405 (Version 7)
Quarter: 2012Q4

REPORT INFORMATION
  Report Type: 
  Country: US (occurrence: US)
  Receive Date: 20120416
  Receipt Date: 20120917
  Transmission Date: 20130627
  Serious: Yes (Hospitalization, Other)
  Sender: FDA-Public Use
  Company Number: US-009507513-1201USA01163

PATIENT

DRUGS (7)
  1. FOSAMAX [Suspect]
     Indication: OSTEOPOROSIS
     Dosage: 10 mg, UNK
     Route: 048
     Dates: start: 200008, end: 200710
  2. FOSAMAX [Suspect]
     Dosage: 70 mg, QW
     Route: 048
     Dates: start: 200008
  3. FOSAMAX D [Suspect]
     Indication: OSTEOPOROSIS
     Dosage: 70 mg, QW
     Route: 048
     Dates: start: 20071004
  4. FORTEO [Concomitant]
     Indication: OSTEOPOROSIS
     Dosage: 20 Microgram, UNK
     Dates: start: 200601, end: 200709
  5. DIOVAN [Concomitant]
     Indication: HYPERTENSION
     Dosage: 80-160
     Dates: start: 200305
  6. NORVASC [Concomitant]
     Indication: HYPERTENSION
     Dosage: 5 mg, qd
     Dates: start: 199908
  7. EXFORGE [Concomitant]

REACTIONS (56)
  - Femur fracture [Unknown]
  - Anaemia postoperative [Unknown]
  - Neoplasm [Unknown]
  - Haematuria [Unknown]
  - Hyperglycaemia [Unknown]
  - Tibia fracture [Unknown]
  - Craniocerebral injury [Unknown]
  - Deafness [Unknown]
  - Asthma [Unknown]
  - Cystitis escherichia [Unknown]
  - Atelectasis [Unknown]
  - Hypertension [Unknown]
  - Subarachnoid haemorrhage [Unknown]
  - Anaemia postoperative [Recovering/Resolving]
  - Open reduction of fracture [Unknown]
  - Atrial fibrillation [Unknown]
  - Mitral valve incompetence [Unknown]
  - Mitral valve prolapse [Unknown]
  - Hypercholesterolaemia [Unknown]
  - Ligament sprain [Unknown]
  - Asthma [Unknown]
  - Cough [Unknown]
  - Haemorrhoids [Not Recovered/Not Resolved]
  - Fracture [Unknown]
  - Stress urinary incontinence [Unknown]
  - Scapula fracture [Unknown]
  - Cardiac murmur [Unknown]
  - Lipohypertrophy [Unknown]
  - Bundle branch block left [Unknown]
  - Supraventricular extrasystoles [Unknown]
  - Renal cyst [Unknown]
  - Bladder disorder [Unknown]
  - Urethral disorder [Unknown]
  - Urethral stenosis [Unknown]
  - Bronchitis [Unknown]
  - Syncope [Unknown]
  - Pharyngo-oesophageal diverticulum [Unknown]
  - Osteoarthritis [Unknown]
  - Intervertebral disc degeneration [Unknown]
  - Arthropathy [Unknown]
  - Lower limb fracture [Unknown]
  - Ankle fracture [Unknown]
  - Osteopenia [Unknown]
  - Blood disorder [Unknown]
  - Influenza [Unknown]
  - Diverticulum [Unknown]
  - Cough [Unknown]
  - Upper respiratory tract infection [Unknown]
  - Fall [Unknown]
  - Aortic valve incompetence [Unknown]
  - Tricuspid valve incompetence [Unknown]
  - Drug ineffective [Unknown]
  - Neck pain [Unknown]
  - Back pain [Unknown]
  - Constipation [Not Recovered/Not Resolved]
  - Back pain [Unknown]
